FAERS Safety Report 20497125 (Version 12)
Quarter: 2022Q2

REPORT INFORMATION
  Report Type: Report from Study
  Country: ES (occurrence: None)
  Receive Date: 20220221
  Receipt Date: 20220425
  Transmission Date: 20220721
  Serious: Yes (Hospitalization)
  Sender: FDA-Public Use
  Company Number: ES-Eisai Medical Research-EC-2022-109076

PATIENT
  Age: 68 Year
  Sex: Female
  Weight: 67.2 kg

DRUGS (19)
  1. LENVATINIB [Suspect]
     Active Substance: LENVATINIB
     Indication: Endometrial cancer
     Dosage: STARTING DOSE 20 MG, FLUCTUATED DOSAGE
     Route: 048
     Dates: start: 20211018, end: 20220212
  2. LENVATINIB [Suspect]
     Active Substance: LENVATINIB
     Route: 048
     Dates: start: 20220213, end: 20220213
  3. PEMBROLIZUMAB [Suspect]
     Active Substance: PEMBROLIZUMAB
     Indication: Endometrial cancer
     Dosage: MK-7684A CONTAINS VIBOSTOLIMAB (MK-7684) 200 MG PLUS PEMBROLIZUMAB 200 MG
     Route: 042
     Dates: start: 20211018, end: 20211220
  4. VIBOSTOLIMAB [Suspect]
     Active Substance: VIBOSTOLIMAB
     Dosage: MK-7684A CONTAINS VIBOSTOLIMAB (MK-7684) 200 MG PLUS PEMBROLIZUMAB 200 MG
     Route: 042
     Dates: start: 20220131, end: 20220131
  5. ALPRAZOLAM [Concomitant]
     Active Substance: ALPRAZOLAM
     Dates: start: 20210101
  6. MELITRACEN HYDROCHLORIDE [Concomitant]
     Active Substance: MELITRACEN HYDROCHLORIDE
     Dates: start: 20210101
  7. ESCITALOPRAM [Concomitant]
     Active Substance: ESCITALOPRAM OXALATE
     Dates: start: 20210101
  8. BISOPROLOL [Concomitant]
     Active Substance: BISOPROLOL
     Dates: start: 20210101
  9. PAROXETINE [Concomitant]
     Active Substance: PAROXETINE
     Dates: start: 20210101
  10. FAMOTIDINE [Concomitant]
     Active Substance: FAMOTIDINE
     Dates: start: 20210101, end: 20220218
  11. TINZAPARIN SODIUM [Concomitant]
     Active Substance: TINZAPARIN SODIUM
     Route: 058
     Dates: start: 20210101
  12. METOCLOPRAMIDE [Concomitant]
     Active Substance: METOCLOPRAMIDE
     Dates: start: 20211129
  13. OMEPRAZOLE [Concomitant]
     Active Substance: OMEPRAZOLE
     Dates: start: 20211129, end: 20220218
  14. TRIMETHOPRIM [Concomitant]
     Active Substance: TRIMETHOPRIM
     Dates: start: 20220110
  15. SULFAMETHOXAZOLE [Concomitant]
     Active Substance: SULFAMETHOXAZOLE
     Dates: start: 20220110
  16. LEVOTHYROXINE SODIUM [Concomitant]
     Active Substance: LEVOTHYROXINE SODIUM
     Dates: start: 20220117, end: 20220213
  17. PREDNISONE [Concomitant]
     Active Substance: PREDNISONE
     Dates: start: 20220124, end: 20220130
  18. PREDNISONE [Concomitant]
     Active Substance: PREDNISONE
     Dates: start: 20220131, end: 20220212
  19. FUROSEMIDE [Concomitant]
     Active Substance: FUROSEMIDE
     Dates: start: 202101

REACTIONS (1)
  - Altered state of consciousness [Recovered/Resolved]

NARRATIVE: CASE EVENT DATE: 20220213
